FAERS Safety Report 7333369-9 (Version None)
Quarter: 2011Q1

REPORT INFORMATION
  Report Type: 
  Country: None (occurrence: None)
  Receive Date: 20110304
  Receipt Date: 20110218
  Transmission Date: 20110831
  Serious: Yes (Hospitalization, Other)
  Sender: FDA-Public Use
  Company Number: IE-BAYER-2011-015788

PATIENT
  Sex: Male

DRUGS (8)
  1. CARDICOR [Concomitant]
     Indication: HYPERTENSION
     Dosage: 2.5 MG, QD
  2. OLMESARTAN [Concomitant]
     Indication: HYPERTENSION
     Dosage: 20 MG, QD
  3. XARELTO [Interacting]
     Indication: THROMBOSIS PROPHYLAXIS
     Dosage: 10 MG, QD
     Route: 048
     Dates: start: 20110118, end: 20110124
  4. LIPITOR [Concomitant]
     Indication: DYSLIPIDAEMIA
     Dosage: 10 MG, QD
  5. DICLOFENAC [Interacting]
     Indication: PAIN
     Dosage: 50 MG, TID
     Route: 048
     Dates: start: 20110118, end: 20110124
  6. ENOXAPARIN [Concomitant]
     Dosage: 40 MG, QD
     Dates: start: 20110114, end: 20110118
  7. ACETYLSALICYLIC ACID SRT [Suspect]
     Indication: CARDIOVASCULAR DISORDER
     Dosage: 75 MG, QD
     Route: 048
     Dates: end: 20110124
  8. CELEBREX [Interacting]
     Indication: PAIN
     Dosage: 200 MG, TID
     Route: 048
     Dates: start: 20101102, end: 20110124

REACTIONS (7)
  - SYNCOPE [None]
  - GASTROINTESTINAL HAEMORRHAGE [None]
  - ACUTE MYOCARDIAL INFARCTION [None]
  - PULMONARY OEDEMA [None]
  - DYSPNOEA [None]
  - MELAENA [None]
  - DIZZINESS [None]
